FAERS Safety Report 14110007 (Version 1)
Quarter: 2017Q4

REPORT INFORMATION
  Report Type: Spontaneous
  Country: US (occurrence: US)
  Receive Date: 20171020
  Receipt Date: 20171020
  Transmission Date: 20180321
  Serious: No
  Sender: FDA-Public Use
  Company Number: US-TEVA-737648ACC

PATIENT
  Age: 18 Year
  Sex: Female

DRUGS (4)
  1. SPRINTEC [Suspect]
     Active Substance: ETHINYL ESTRADIOL\NORGESTIMATE
     Route: 065
  2. CLARITIN [Concomitant]
     Active Substance: LORATADINE
  3. MYORISAN [Suspect]
     Active Substance: ISOTRETINOIN
     Indication: ACNE
     Dosage: 40 MILLIGRAM DAILY;
     Route: 048
     Dates: start: 20161108, end: 201611
  4. NAPROSYN [Concomitant]
     Active Substance: NAPROXEN

REACTIONS (1)
  - Vaginal haemorrhage [Unknown]

NARRATIVE: CASE EVENT DATE: 201611
